FAERS Safety Report 4660318-4 (Version None)
Quarter: 2005Q2

REPORT INFORMATION
  Report Type: 
  Country: None (occurrence: None)
  Receive Date: 20050427
  Receipt Date: 20050112
  Transmission Date: 20051028
  Serious: No
  Sender: FDA-Public Use
  Company Number: 211552

PATIENT
  Age: 61 Year
  Sex: Male
  Weight: 120.2 kg

DRUGS (2)
  1. XOLAIR [Suspect]
     Indication: ASTHMA
     Dosage: 375 MG, Q2W,
     Dates: start: 20041106, end: 20050111
  2. XOLAIR [Suspect]

REACTIONS (2)
  - PRURITUS [None]
  - RASH [None]
